FAERS Safety Report 18383929 (Version 1)
Quarter: 2020Q4

REPORT INFORMATION
  Report Type: Spontaneous
  Country: CN (occurrence: CN)
  Receive Date: 20201014
  Receipt Date: 20201014
  Transmission Date: 20210114
  Serious: Yes (Other)
  Sender: FDA-Public Use
  Company Number: CN-JNJFOC-20201011241

PATIENT

DRUGS (2)
  1. REMICADE [Suspect]
     Active Substance: INFLIXIMAB
     Indication: KAWASAKI^S DISEASE
     Route: 042
  2. ASPIRIN                            /00002701/ [Concomitant]
     Active Substance: ASPIRIN
     Indication: PYREXIA
     Dosage: 30 ~ 50MG KG-1 D-1, IN DIVIDED DOSES
     Route: 065

REACTIONS (6)
  - Kaposi^s varicelliform eruption [Unknown]
  - Off label use [Unknown]
  - Human herpesvirus 8 infection [Unknown]
  - Product use in unapproved indication [Unknown]
  - Infection [Unknown]
  - Stevens-Johnson syndrome [Unknown]
